FAERS Safety Report 5619549-9 (Version None)
Quarter: 2008Q1

REPORT INFORMATION
  Report Type: 
  Country: None (occurrence: None)
  Receive Date: 20080205
  Receipt Date: 20080205
  Transmission Date: 20080703
  Serious: Yes (Hospitalization)
  Sender: FDA-Public Use
  Company Number: None

PATIENT
  Age: 27 Year
  Sex: Female
  Weight: 52.1637 kg

DRUGS (1)
  1. MALARONE [Suspect]
     Indication: MALARIA PROPHYLAXIS
     Dosage: ONE TAB ONE A DAY PO
     Route: 048
     Dates: start: 20080110, end: 20080119

REACTIONS (5)
  - AGITATION [None]
  - DECREASED APPETITE [None]
  - DELUSION [None]
  - IMPAIRED WORK ABILITY [None]
  - INSOMNIA [None]
